FAERS Safety Report 14493050 (Version 1)
Quarter: 2018Q1

REPORT INFORMATION
  Report Type: Spontaneous
  Country: IT (occurrence: IT)
  Receive Date: 20180206
  Receipt Date: 20180206
  Transmission Date: 20180509
  Serious: Yes (Other)
  Sender: FDA-Public Use
  Company Number: PHHY2018IT016706

PATIENT
  Age: 20 Year
  Sex: Male

DRUGS (4)
  1. VALPROIC ACID. [Suspect]
     Active Substance: VALPROIC ACID
     Indication: AGGRESSION
     Dosage: 1000 MG, QD
     Route: 048
     Dates: start: 20150707, end: 20150721
  2. VALIUM [Concomitant]
     Active Substance: DIAZEPAM
     Indication: MANIA
     Dosage: 30 GTT (5 MG/ML), UNK
     Route: 048
     Dates: start: 20150707, end: 20150720
  3. ARIPIPRAZOLE. [Interacting]
     Active Substance: ARIPIPRAZOLE
     Indication: DELUSION OF GRANDEUR
     Dosage: 30 MG, QD
     Route: 048
     Dates: start: 20150707, end: 20150721
  4. SERENASE [Interacting]
     Active Substance: HALOPERIDOL
     Indication: PSYCHOMOTOR HYPERACTIVITY
     Dosage: 1 DF, QD
     Route: 048
     Dates: start: 20150710, end: 20150720

REACTIONS (6)
  - Off label use [Unknown]
  - Muscle rigidity [Not Recovered/Not Resolved]
  - Dystonia [Not Recovered/Not Resolved]
  - Salivary hypersecretion [Not Recovered/Not Resolved]
  - Dysphagia [Not Recovered/Not Resolved]
  - Drug interaction [Unknown]

NARRATIVE: CASE EVENT DATE: 20150721
